FAERS Safety Report 24299848 (Version 1)
Quarter: 2024Q3

REPORT INFORMATION
  Report Type: Spontaneous
  Country: US (occurrence: None)
  Receive Date: 20240909
  Receipt Date: 20240909
  Transmission Date: 20241016
  Serious: Yes (Other)
  Sender: ASTRAZENECA
  Company Number: 2024A202025

PATIENT
  Age: 2 Year
  Sex: Male

DRUGS (3)
  1. SELUMETINIB [Suspect]
     Active Substance: SELUMETINIB
     Indication: Glioneuronal tumour
     Route: 048
  2. VINCRISTINE/CARBOPLATIN [Concomitant]
     Indication: Glioneuronal tumour
  3. VINBLASTINE [Concomitant]
     Active Substance: VINBLASTINE
     Indication: Glioneuronal tumour

REACTIONS (3)
  - Malignant neoplasm progression [Unknown]
  - Off label use [Unknown]
  - Off label use [Unknown]
